FAERS Safety Report 4704936-3 (Version None)
Quarter: 2005Q3

REPORT INFORMATION
  Report Type: 
  Country: None (occurrence: None)
  Receive Date: 20050701
  Receipt Date: 20050624
  Transmission Date: 20060218
  Serious: Yes (Hospitalization, Other)
  Sender: FDA-Public Use
  Company Number: US-BRISTOL-MYERS SQUIBB COMPANY-13016175

PATIENT
  Age: 52 Year
  Sex: Male
  Weight: 57 kg

DRUGS (4)
  1. CETUXIMAB [Suspect]
     Indication: COLORECTAL CANCER METASTATIC
     Dosage: TOTAL DOSE ADMINISTERED THIS COURSE = 415 MG.  INFUSED OVER 60 MINUTES.
     Route: 042
     Dates: start: 20050509, end: 20050509
  2. FLUOROURACIL [Suspect]
     Indication: COLORECTAL CANCER METASTATIC
     Dosage: TOTAL DOSE ADMINISTERED THIS COURSE = 531 MG IV BOLUS F/B 2400 MG/M2 CIV OVER 46-48 HOURS.
     Route: 040
     Dates: start: 20050509, end: 20050509
  3. LEUCOVORIN CALCIUM [Suspect]
     Indication: COLORECTAL CANCER METASTATIC
     Dosage: TOTALDOSEADMIN THIS COURSE=664 MG INFUSED OVER 2 HRS CONCURRENTLY W/OXALIPLATIN THROUGH Y-IV TUBING.
     Route: 042
     Dates: start: 20050509, end: 20050509
  4. OXALIPLATIN [Suspect]
     Indication: COLORECTAL CANCER METASTATIC
     Dosage: TOTALDOSE ADMIN THIS COURSE=124 MG INFUSED OVER 2 HRS CONCURRENTLY W/LEUCOVORIN THROUGH Y-IV TUBING.
     Route: 042
     Dates: start: 20050509, end: 20050509

REACTIONS (7)
  - BACK PAIN [None]
  - HAEMOLYSIS [None]
  - HAEMORRHAGE URINARY TRACT [None]
  - HYPERHIDROSIS [None]
  - HYPERTENSION [None]
  - PAIN IN EXTREMITY [None]
  - VOMITING [None]
